FAERS Safety Report 8348042-8 (Version None)
Quarter: 2012Q2

REPORT INFORMATION
  Report Type: 
  Country: None (occurrence: None)
  Receive Date: 20120509
  Receipt Date: 20120507
  Transmission Date: 20120825
  Serious: No
  Sender: FDA-Public Use
  Company Number: US-PFIZER INC-2012112111

PATIENT
  Sex: Female
  Weight: 61.224 kg

DRUGS (4)
  1. CHANTIX [Suspect]
     Dosage: UNK
     Dates: start: 20120101, end: 20120406
  2. OXYCODONE HYDROCHLORIDE [Suspect]
     Indication: PAIN
     Dosage: 5 MG, EVERY 6 HRS
     Dates: start: 20120301, end: 20120101
  3. CHANTIX [Suspect]
     Indication: SMOKING CESSATION THERAPY
     Dosage: 0.5 MG, DAILY
     Dates: start: 20120301, end: 20120101
  4. BACTRIM [Suspect]
     Indication: MALIGNANT BREAST LUMP REMOVAL
     Dosage: UNK
     Dates: start: 20120301, end: 20120101

REACTIONS (2)
  - VOMITING [None]
  - MALAISE [None]
